FAERS Safety Report 23503070 (Version 1)
Quarter: 2024Q1

REPORT INFORMATION
  Report Type: Spontaneous
  Country: US (occurrence: US)
  Receive Date: 20240208
  Receipt Date: 20240208
  Transmission Date: 20240410
  Serious: No
  Sender: FDA-Public Use
  Company Number: US-INTRA-CELLULAR THERAPIES, INC.-2023ICT01473

PATIENT
  Age: 4 Decade
  Sex: Female

DRUGS (3)
  1. CAPLYTA [Suspect]
     Active Substance: LUMATEPERONE
     Indication: Bipolar disorder
     Dosage: 42 MG, 1X/DAY
     Route: 048
     Dates: start: 202309, end: 202310
  2. XANAX [Suspect]
     Active Substance: ALPRAZOLAM
     Dosage: 3 MG, AS NEEDED
     Route: 048
  3. XANAX [Suspect]
     Active Substance: ALPRAZOLAM
     Dosage: 6 MG, AS NEEDED
     Route: 048
     Dates: start: 202309

REACTIONS (1)
  - Memory impairment [Unknown]

NARRATIVE: CASE EVENT DATE: 20231001
